FAERS Safety Report 14460437 (Version 2)
Quarter: 2018Q1

REPORT INFORMATION
  Report Type: Spontaneous
  Country: DE (occurrence: DE)
  Receive Date: 20180130
  Receipt Date: 20180327
  Transmission Date: 20180509
  Serious: Yes (Other)
  Sender: FDA-Public Use
  Company Number: PHHY2017DE196207

PATIENT
  Age: 75 Year
  Sex: Male

DRUGS (2)
  1. CLINDAMYCIN. [Suspect]
     Active Substance: CLINDAMYCIN
     Indication: CELLULITIS
     Dosage: UNK
     Route: 042
  2. CEFUROXIME. [Suspect]
     Active Substance: CEFUROXIME
     Indication: CELLULITIS
     Dosage: UNK
     Route: 042

REACTIONS (3)
  - Product use in unapproved indication [Unknown]
  - Type IV hypersensitivity reaction [Recovering/Resolving]
  - Rash maculo-papular [Recovering/Resolving]

NARRATIVE: CASE EVENT DATE: 20171122
